FAERS Safety Report 8343938-5 (Version None)
Quarter: 2012Q2

REPORT INFORMATION
  Report Type: 
  Country: None (occurrence: None)
  Receive Date: 20120508
  Receipt Date: 20101028
  Transmission Date: 20120825
  Serious: No
  Sender: FDA-Public Use
  Company Number: US-TEVA-2010005320

PATIENT
  Sex: Male
  Weight: 74.8 kg

DRUGS (2)
  1. TREANDA [Suspect]
     Indication: CHRONIC LYMPHOCYTIC LEUKAEMIA
     Route: 042
     Dates: start: 20100809, end: 20101007
  2. TREANDA [Suspect]
     Route: 042
     Dates: start: 20100809, end: 20101007

REACTIONS (1)
  - VEIN DISCOLOURATION [None]
